FAERS Safety Report 5463124-6 (Version None)
Quarter: 2007Q3

REPORT INFORMATION
  Report Type: 
  Country: None (occurrence: None)
  Receive Date: 20070918
  Receipt Date: 20070918
  Transmission Date: 20080115
  Serious: Yes (Life-Threatening)
  Sender: FDA-Public Use
  Company Number: None

PATIENT
  Age: 55 Year
  Sex: Female
  Weight: 40.3701 kg

DRUGS (1)
  1. HUMIRA [Suspect]
     Indication: CROHN'S DISEASE
     Dosage: 40 MG  EVERY OTHER WEEK  SQ
     Route: 058
     Dates: start: 20070610, end: 20070914

REACTIONS (3)
  - ANAEMIA [None]
  - CYSTITIS [None]
  - DEHYDRATION [None]
